FAERS Safety Report 8595833-4 (Version None)
Quarter: 2012Q3

REPORT INFORMATION
  Report Type: 
  Country: None (occurrence: None)
  Receive Date: 20120815
  Receipt Date: 20120801
  Transmission Date: 20120928
  Serious: Yes (Hospitalization)
  Sender: FDA-Public Use
  Company Number: JP-ROCHE-1097796

PATIENT
  Age: 47 Year
  Sex: Male

DRUGS (8)
  1. BASILIXIMAB [Concomitant]
     Indication: PROPHYLAXIS AGAINST TRANSPLANT REJECTION
     Dosage: DOSAGE IS UNCERTAIN.
     Route: 042
  2. REBETOL [Concomitant]
     Dosage: DOSAGE IS UNCERTAIN.
     Route: 048
     Dates: end: 20091001
  3. PREDNISOLONE [Concomitant]
     Indication: PROPHYLAXIS AGAINST TRANSPLANT REJECTION
     Dosage: DOSAGE IS UNCERTAIN.
     Route: 065
  4. MIZORIBINE [Concomitant]
     Indication: PROPHYLAXIS AGAINST TRANSPLANT REJECTION
     Dosage: DOSAGE IS UNCERTAIN.
     Route: 065
  5. CELLCEPT [Suspect]
     Indication: PROPHYLAXIS AGAINST TRANSPLANT REJECTION
     Dosage: DOSAGE IS UNCERTAIN.
     Route: 048
     Dates: end: 20111001
  6. ENTECAVIR HYDRATE [Concomitant]
     Indication: HEPATITIS B SURFACE ANTIBODY POSITIVE
     Dosage: DOSAGE IS UNCERTAIN.
     Route: 048
  7. PEG-INTRON [Concomitant]
     Dosage: DOSAGE IS UNCERTAIN.
     Route: 058
     Dates: end: 20091001
  8. SIROLIMUS [Concomitant]
     Indication: PROPHYLAXIS AGAINST TRANSPLANT REJECTION
     Dosage: DOSAGE IS UNCERTAIN.
     Route: 065

REACTIONS (1)
  - LEUKOENCEPHALOPATHY [None]
